FAERS Safety Report 26120359 (Version 3)
Quarter: 2025Q4

REPORT INFORMATION
  Report Type: Spontaneous
  Country: EU (occurrence: EU)
  Receive Date: 20251204
  Receipt Date: 20251229
  Transmission Date: 20260118
  Serious: No
  Sender: JOHNSON AND JOHNSON
  Company Number: EU-JNJFOC-20251155345

PATIENT
  Age: 43 Year
  Sex: Male

DRUGS (2)
  1. GUSELKUMAB [Suspect]
     Active Substance: GUSELKUMAB
     Indication: Psoriasis
     Dosage: STRENGTH: 50.00 MG / 0.50 ML
     Route: 058
     Dates: start: 202311
  2. GUSELKUMAB [Suspect]
     Active Substance: GUSELKUMAB
     Indication: Pain

REACTIONS (2)
  - Injection site pain [Unknown]
  - Device deployment issue [Unknown]

NARRATIVE: CASE EVENT DATE: 20251107
